FAERS Safety Report 23026358 (Version 5)
Quarter: 2024Q1

REPORT INFORMATION
  Report Type: Report from Study
  Country: US (occurrence: US)
  Receive Date: 20231004
  Receipt Date: 20240305
  Transmission Date: 20240410
  Serious: Yes (Hospitalization, Other)
  Sender: FDA-Public Use
  Company Number: US-SANDOZ-SDZ2023US029228

PATIENT
  Sex: Female
  Weight: 68.481 kg

DRUGS (6)
  1. TREPROSTINIL [Suspect]
     Active Substance: TREPROSTINIL
     Dosage: 40 NG/KG/ MIN , CONT
     Route: 042
     Dates: start: 20230911
  2. TREPROSTINIL [Suspect]
     Active Substance: TREPROSTINIL
     Indication: Pulmonary arterial hypertension
     Dosage: 40 NG/KG/MIN, CONT
     Route: 042
     Dates: start: 20230911
  3. TREPROSTINIL [Suspect]
     Active Substance: TREPROSTINIL
     Dosage: 40 NG/KG/ MIN , CONT
     Route: 042
     Dates: start: 20230911
  4. OPSUMIT [Concomitant]
     Active Substance: MACITENTAN
     Indication: Product used for unknown indication
     Route: 065
  5. SILDENAFIL CITRATE [Concomitant]
     Active Substance: SILDENAFIL CITRATE
     Indication: Product used for unknown indication
     Route: 065
  6. SILDENAFIL CITRATE [Concomitant]
     Active Substance: SILDENAFIL CITRATE
     Indication: Product used for unknown indication
     Route: 065

REACTIONS (12)
  - Seizure [Unknown]
  - Hypoxia [Unknown]
  - Septic shock [Unknown]
  - Thrombosis [Unknown]
  - Loss of consciousness [Unknown]
  - Panic reaction [Unknown]
  - Cough [Unknown]
  - Injection site haemorrhage [Unknown]
  - Dyspnoea [Unknown]
  - Headache [Unknown]
  - Fatigue [Unknown]
  - Pain [Unknown]
